FAERS Safety Report 13671366 (Version 1)
Quarter: 2017Q2

REPORT INFORMATION
  Report Type: Spontaneous
  Country: US (occurrence: US)
  Receive Date: 20170620
  Receipt Date: 20170620
  Transmission Date: 20170830
  Serious: No
  Sender: FDA-Public Use
  Company Number: US-ROCHE-1380275

PATIENT
  Sex: Female

DRUGS (2)
  1. XELODA [Suspect]
     Active Substance: CAPECITABINE
     Indication: COLON CANCER
     Dosage: IN MORNING, 7 DAYS OFF
     Route: 048
     Dates: start: 20140228
  2. XELODA [Suspect]
     Active Substance: CAPECITABINE
     Dosage: EVENING, 7 DAYS OFF
     Route: 048
     Dates: start: 20140228

REACTIONS (3)
  - Diarrhoea [Not Recovered/Not Resolved]
  - Erythema [Not Recovered/Not Resolved]
  - Skin exfoliation [Not Recovered/Not Resolved]
